FAERS Safety Report 9508453 (Version 2)
Quarter: 2013Q4

REPORT INFORMATION
  Report Type: Report from Study
  Country: JP (occurrence: JP)
  Receive Date: 20130909
  Receipt Date: 20131218
  Transmission Date: 20140711
  Serious: Yes (Other)
  Sender: FDA-Public Use
  Company Number: JP-VERTEX PHARMACEUTICALS INC-2013-009340

PATIENT
  Age: 70 Year
  Sex: Female

DRUGS (12)
  1. VX-950 (TELAPREVIR) [Suspect]
     Indication: CHRONIC HEPATITIS C
     Dosage: 2250 MG, QD
     Route: 048
     Dates: start: 20120515, end: 20120521
  2. VX-950 (TELAPREVIR) [Suspect]
     Dosage: 1500 MG, QD
     Route: 048
     Dates: start: 20120522, end: 20120612
  3. VX-950 (TELAPREVIR) [Suspect]
     Dosage: 750 MG, QD
     Route: 048
     Dates: start: 20120613, end: 20120625
  4. REBETOL [Suspect]
     Indication: CHRONIC HEPATITIS C
     Dosage: 600 MG, QD
     Route: 048
     Dates: start: 20120515, end: 20120604
  5. REBETOL [Suspect]
     Dosage: 400 MG, QD
     Route: 048
     Dates: start: 20120605, end: 20120612
  6. REBETOL [Suspect]
     Dosage: 200 MG, QD
     Route: 048
     Dates: start: 20120613
  7. PEGINTERFERON ALFA-2B [Concomitant]
     Dosage: 1.5 ?G/KG, QW
     Route: 058
     Dates: start: 20120515
  8. WAKADENIN [Concomitant]
     Dosage: 30 MG, QD
     Route: 048
     Dates: end: 20120604
  9. PROMAC [Concomitant]
     Dosage: 150 MG, QD
     Route: 048
     Dates: start: 20120515
  10. CINAL [Concomitant]
     Dosage: 3 DF, QD
     Route: 048
     Dates: start: 20120515
  11. JUVELA N [Concomitant]
     Dosage: 600 MG, QD
     Route: 048
     Dates: start: 20120515
  12. CEPHARANTHINE [Concomitant]
     Dosage: 6 MG, QD
     Route: 048
     Dates: end: 20120604

REACTIONS (1)
  - Neutrophil count decreased [Recovered/Resolved]
